FAERS Safety Report 7916784-1 (Version None)
Quarter: 2011Q4

REPORT INFORMATION
  Report Type: 
  Country: None (occurrence: None)
  Receive Date: 20111116
  Receipt Date: 20111109
  Transmission Date: 20120403
  Serious: Yes (Other)
  Sender: FDA-Public Use
  Company Number: KR-ELI_LILLY_AND_COMPANY-KR201111004094

PATIENT
  Age: 64 Year
  Sex: Female
  Weight: 39 kg

DRUGS (2)
  1. HUMALOG MIX 50/50 [Suspect]
     Indication: DIABETES MELLITUS
     Dosage: 18 U, EACH MORNING
     Dates: start: 20110924
  2. HUMALOG MIX 50/50 [Suspect]
     Dosage: 4 U, EACH EVENING
     Dates: start: 20110924

REACTIONS (1)
  - PANCREATIC MASS [None]
